FAERS Safety Report 25382584 (Version 3)
Quarter: 2025Q4

REPORT INFORMATION
  Report Type: Spontaneous
  Country: EU (occurrence: EU)
  Receive Date: 20250601
  Receipt Date: 20251028
  Transmission Date: 20260118
  Serious: Yes (Other)
  Sender: JOHNSON AND JOHNSON
  Company Number: EU-JNJFOC-20241237489

PATIENT
  Age: 76 Year
  Sex: Female
  Weight: 64 kg

DRUGS (8)
  1. RYBREVANT [Suspect]
     Active Substance: AMIVANTAMAB-VMJW
     Indication: Non-small cell lung cancer metastatic
     Dosage: 4TH INFUSION
     Route: 065
     Dates: start: 20250109, end: 20250109
  2. RYBREVANT [Suspect]
     Active Substance: AMIVANTAMAB-VMJW
     Dosage: TREATMENT RESUMPTION AFTER INTERRUPTION ON 17-DEC-2024
     Route: 065
     Dates: start: 20241227
  3. RYBREVANT [Suspect]
     Active Substance: AMIVANTAMAB-VMJW
     Dosage: 5TH INFUSION; RESUMPTION AFTER INTERRUPTION ON 30-JAN-2025
     Route: 065
     Dates: start: 20250320, end: 20250320
  4. RYBREVANT [Suspect]
     Active Substance: AMIVANTAMAB-VMJW
     Dosage: WEEKLY FROM WEEK 1 TO WEEK 4 (4 DOSES TOTAL)?  WEEK 1 - FRACTIONAL INFUSION ON DAY 1 AND DAY 2?  WEE
     Route: 065
  5. RYBREVANT [Suspect]
     Active Substance: AMIVANTAMAB-VMJW
     Dosage: EVERY 3 WEEKS BEGINNING IN WEEK 7
     Route: 065
  6. OSIMERTINIB [Concomitant]
     Active Substance: OSIMERTINIB
     Indication: Non-small cell lung cancer
  7. CARBOPLATIN [Concomitant]
     Active Substance: CARBOPLATIN
     Indication: Non-small cell lung cancer
     Dosage: 310 MG/ML/MIN(TARGET AUC); RESUMPTION AFTER INTERRUPTION ON 17-DEC-2024
     Route: 065
     Dates: start: 20241227, end: 20250320
  8. PEMETREXED [Concomitant]
     Active Substance: PEMETREXED
     Indication: Non-small cell lung cancer
     Dosage: RESUMPTION AFTER INTERRUPTION ON 17-DEC-2024
     Route: 065
     Dates: start: 20241227, end: 20250320

REACTIONS (8)
  - Duodenal ulcer haemorrhage [Unknown]
  - Metastases to pleura [Unknown]
  - Shock haemorrhagic [Recovering/Resolving]
  - Cardiac arrest [Unknown]
  - Acute pulmonary oedema [Unknown]
  - Wrong technique in product usage process [Unknown]
  - Off label use [Unknown]
  - General physical health deterioration [Unknown]
